FAERS Safety Report 9200791 (Version 1)
Quarter: 2013Q1

REPORT INFORMATION
  Report Type: Spontaneous
  Country: IT (occurrence: None)
  Receive Date: 20130327
  Receipt Date: 20130327
  Transmission Date: 20140127
  Serious: Yes (Hospitalization)
  Sender: FDA-Public Use
  Company Number: 2013-05189

PATIENT
  Age: 49 Year
  Sex: Male

DRUGS (3)
  1. ZOLPIDEM TARTRATE [Suspect]
     Indication: PRODUCT USED FOR UNKNOWN INDICATION
     Dosage: 10 TABLET, OVERDOSE, ORAL
     Route: 048
     Dates: start: 20130115, end: 20130115
  2. LORAZEPAM [Suspect]
     Indication: PRODUCT USED FOR UNKNOWN INDICATION
     Dosage: 10 TABLET, OVERDOSE, ORAL
     Route: 048
     Dates: start: 20130115, end: 20130115
  3. ETHANOL [Suspect]
     Indication: PRODUCT USED FOR UNKNOWN INDICATION
     Route: 048
     Dates: start: 20130115, end: 20130115

REACTIONS (4)
  - Hypokinesia [None]
  - Drug abuse [None]
  - Intentional drug misuse [None]
  - Overdose [None]
